FAERS Safety Report 6488796-9 (Version None)
Quarter: 2009Q4

REPORT INFORMATION
  Report Type: 
  Country: None (occurrence: None)
  Receive Date: 20091210
  Receipt Date: 20091202
  Transmission Date: 20100525
  Serious: Yes (Other)
  Sender: FDA-Public Use
  Company Number: JP-PFIZER INC-2009295193

PATIENT

DRUGS (1)
  1. AROMASIN [Suspect]
     Dosage: UNK
     Route: 048

REACTIONS (2)
  - BLADDER DISORDER [None]
  - CONDITION AGGRAVATED [None]
